FAERS Safety Report 4866652-7 (Version None)
Quarter: 2005Q4

REPORT INFORMATION
  Report Type: 
  Country: None (occurrence: None)
  Receive Date: 20051221
  Receipt Date: 20051205
  Transmission Date: 20060501
  Serious: Yes (Disabling)
  Sender: FDA-Public Use
  Company Number: S05-UKI-05669-01

PATIENT
  Age: 55 Year
  Sex: Male

DRUGS (3)
  1. ESCITALOPRAM OXALATE [Suspect]
     Indication: DEPRESSION
     Dosage: 5 MG QD PO
     Route: 048
     Dates: start: 20051110, end: 20051112
  2. AMITRIPTYLINE [Concomitant]
  3. TEMAZEPAM [Concomitant]

REACTIONS (3)
  - PSYCHIATRIC SYMPTOM [None]
  - SELF-INJURIOUS IDEATION [None]
  - SUICIDAL IDEATION [None]
